FAERS Safety Report 10775552 (Version 1)
Quarter: 2015Q1

REPORT INFORMATION
  Report Type: Spontaneous
  Country: NL (occurrence: None)
  Receive Date: 20150205
  Receipt Date: 20150205
  Transmission Date: 20150721
  Serious: Yes (Other)
  Sender: FDA-Public Use
  Company Number: NGX_02722_2015

PATIENT

DRUGS (1)
  1. QUTENZA [Suspect]
     Active Substance: CAPSAICIN
     Indication: CARPAL TUNNEL SYNDROME
     Dosage: CUTANOUS PATCH, TRANDERMAL
     Route: 062

REACTIONS (2)
  - Complex regional pain syndrome [None]
  - Off label use [None]
